FAERS Safety Report 7657429 (Version 3)
Quarter: 2014Q2

REPORT INFORMATION
  Report Type: Spontaneous
  Country: US (occurrence: US)
  Receive Date: 20101105
  Receipt Date: 20140613
  Transmission Date: 20141212
  Serious: Yes (Hospitalization, Other)
  Sender: FDA-Public Use
  Company Number: US-BAYER-201039480NA

PATIENT
  Age: 43 Year
  Sex: Female

DRUGS (6)
  1. YAZ [Suspect]
     Indication: ORAL CONTRACEPTION
     Dosage: UNK UNK, UNK
     Route: 048
     Dates: start: 2001, end: 20090615
  2. YAZ [Suspect]
     Indication: ACNE
  3. ZOLOFT [Concomitant]
     Indication: DEPRESSION
  4. SPIROLAKTON [Concomitant]
  5. MERIDIA [Concomitant]
  6. DIANE 35 [Concomitant]
     Dosage: UNK
     Dates: start: 20030805

REACTIONS (4)
  - Deep vein thrombosis [Unknown]
  - Pulmonary embolism [Unknown]
  - Gallbladder disorder [None]
  - Cholecystitis [None]
